FAERS Safety Report 22169341 (Version 31)
Quarter: 2025Q4

REPORT INFORMATION
  Report Type: Report from Study
  Country: CA (occurrence: CA)
  Receive Date: 20230404
  Receipt Date: 20251110
  Transmission Date: 20260118
  Serious: Yes (Hospitalization, Other)
  Sender: JOHNSON AND JOHNSON
  Company Number: CA-JNJFOC-20220604919

PATIENT
  Age: 53 Year
  Sex: Female
  Weight: 72 kg

DRUGS (48)
  1. REMICADE [Suspect]
     Active Substance: INFLIXIMAB
     Indication: Psoriatic arthropathy
     Dosage: THERAPY DATE ALSO REPORTED AS 20-DEC-2021.
     Route: 041
     Dates: start: 20211202
  2. REMICADE [Suspect]
     Active Substance: INFLIXIMAB
     Indication: Ankylosing spondylitis
     Dosage: EXPIRY DATE: APR-2026, 01/OCT/2024, MAY-2027
     Route: 041
     Dates: start: 20211202
  3. REMICADE [Suspect]
     Active Substance: INFLIXIMAB
     Indication: Spondylitis
     Route: 041
     Dates: start: 20211130
  4. REMICADE [Suspect]
     Active Substance: INFLIXIMAB
     Dosage: THERAPY DATE ALSO REPORTED AS 20-DEC-2021.
     Route: 041
     Dates: start: 20211202
  5. REMICADE [Suspect]
     Active Substance: INFLIXIMAB
     Dosage: THERAPY DATE ALSO REPORTED AS 20-DEC-2021.
     Route: 041
     Dates: start: 20211202
  6. REMICADE [Suspect]
     Active Substance: INFLIXIMAB
     Dosage: THERAPY DATE ALSO REPORTED AS 20-DEC-2021.
     Route: 041
     Dates: start: 20211202
  7. REMICADE [Suspect]
     Active Substance: INFLIXIMAB
     Dosage: THERAPY DATE ALSO REPORTED AS 20-DEC-2021.
     Route: 041
     Dates: start: 20211202
  8. REMICADE [Suspect]
     Active Substance: INFLIXIMAB
     Dosage: LOT EXPIRATION DATE: MAY-2027, AUG-2027. PATIENT HAD TOTAL 31 INFUSIONS AT THE TIME OF THIS REPORT.
     Route: 041
     Dates: start: 20211202
  9. REMICADE [Suspect]
     Active Substance: INFLIXIMAB
     Dosage: THERAPY DATE ALSO REPORTED AS 20-DEC-2021.
     Route: 041
     Dates: start: 20211202
  10. REMICADE [Suspect]
     Active Substance: INFLIXIMAB
     Route: 041
     Dates: start: 20211202
  11. REMICADE [Suspect]
     Active Substance: INFLIXIMAB
     Dosage: THERAPY DATE ALSO REPORTED AS 20-DEC-2021.
     Route: 041
     Dates: start: 20211202
  12. REMICADE [Suspect]
     Active Substance: INFLIXIMAB
     Dosage: EXPIRY DATE -31-JAN-2025, 01-JAN-2025, 01-JUL-2025, 31-JUL-2025?BATCH NUMBER: 22E061, EXPIRATION DAT
     Route: 041
  13. REMICADE [Suspect]
     Active Substance: INFLIXIMAB
     Dosage: EXPIRY: 01-APR-2026
     Route: 041
  14. REMICADE [Suspect]
     Active Substance: INFLIXIMAB
     Route: 041
  15. REMICADE [Suspect]
     Active Substance: INFLIXIMAB
     Route: 041
  16. REMICADE [Suspect]
     Active Substance: INFLIXIMAB
     Route: 041
  17. REMICADE [Suspect]
     Active Substance: INFLIXIMAB
     Route: 041
  18. REMICADE [Suspect]
     Active Substance: INFLIXIMAB
     Route: 041
  19. REMICADE [Suspect]
     Active Substance: INFLIXIMAB
     Route: 041
  20. REMICADE [Suspect]
     Active Substance: INFLIXIMAB
     Dosage: THERAPY DATE ALSO REPORTED AS 20-DEC-2021, EXPIRY: SEP-2027
     Route: 041
  21. REMICADE [Suspect]
     Active Substance: INFLIXIMAB
     Route: 041
  22. HIZENTRA [Suspect]
     Active Substance: HUMAN IMMUNOGLOBULIN G
     Indication: Product used for unknown indication
     Dosage: 20 ML ADDED-ON TO TREATMENT ON THE DAY OF PATIENT^S REMICADE INFUSION, AFTER THE TREATMENT, FOR 2 MO
     Route: 058
  23. PREGABALIN [Suspect]
     Active Substance: PREGABALIN
     Indication: Paraesthesia
     Route: 065
  24. LACTOSE [Suspect]
     Active Substance: LACTOSE
     Indication: Product used for unknown indication
     Route: 065
  25. IMODIUM [Concomitant]
     Active Substance: LOPERAMIDE HYDROCHLORIDE
     Indication: Product used for unknown indication
     Route: 065
  26. SULFATRIM [Concomitant]
     Active Substance: SULFAMETHOXAZOLE\TRIMETHOPRIM
     Indication: Product used for unknown indication
  27. HYDROMORPHONE [Concomitant]
     Active Substance: HYDROMORPHONE
     Indication: Product used for unknown indication
     Route: 065
  28. FLOVENT [Concomitant]
     Active Substance: FLUTICASONE PROPIONATE
     Indication: Product used for unknown indication
     Route: 065
  29. AMITRIPTYLINE [Concomitant]
     Active Substance: AMITRIPTYLINE
     Indication: Product used for unknown indication
     Route: 065
  30. DULOXETINE [Concomitant]
     Active Substance: DULOXETINE
     Indication: Product used for unknown indication
     Route: 065
  31. OZEMPIC [Concomitant]
     Active Substance: SEMAGLUTIDE
     Indication: Product used for unknown indication
     Route: 065
  32. OZEMPIC [Concomitant]
     Active Substance: SEMAGLUTIDE
     Route: 065
  33. SPIRIVA [Concomitant]
     Active Substance: TIOTROPIUM BROMIDE MONOHYDRATE
     Indication: Product used for unknown indication
     Route: 065
  34. CHOLECALCIFEROL [Concomitant]
     Active Substance: CHOLECALCIFEROL
     Indication: Product used for unknown indication
     Route: 065
  35. MONTELUKAST [Concomitant]
     Active Substance: MONTELUKAST
     Indication: Product used for unknown indication
     Route: 065
  36. PULMICORT TURBUHALER [Concomitant]
     Active Substance: BUDESONIDE
     Indication: Product used for unknown indication
     Route: 065
  37. HUMALOG [Concomitant]
     Active Substance: INSULIN LISPRO
     Indication: Product used for unknown indication
     Route: 065
  38. SANTRA [Concomitant]
     Indication: Product used for unknown indication
     Route: 065
  39. CHOLECALCIFEROL [Concomitant]
     Active Substance: CHOLECALCIFEROL
     Indication: Product used for unknown indication
     Route: 065
  40. CALCIUM SENNOSIDES [Concomitant]
     Active Substance: SENNOSIDES
     Indication: Product used for unknown indication
     Route: 065
  41. SULFATRIM [Concomitant]
     Active Substance: SULFAMETHOXAZOLE\TRIMETHOPRIM
     Indication: Product used for unknown indication
     Route: 065
  42. HYDROXYCHLOROQUINE [Concomitant]
     Active Substance: HYDROXYCHLOROQUINE
     Indication: Product used for unknown indication
     Route: 065
  43. DEXILANT [Concomitant]
     Active Substance: DEXLANSOPRAZOLE
     Indication: Product used for unknown indication
     Route: 065
  44. VENTOLIN [Concomitant]
     Active Substance: ALBUTEROL SULFATE
     Indication: Product used for unknown indication
     Route: 065
  45. IMMUNOGLOBULINS [Concomitant]
     Indication: Product used for unknown indication
     Route: 065
  46. HYDROMORPHONE [Concomitant]
     Active Substance: HYDROMORPHONE
     Indication: Product used for unknown indication
     Route: 065
  47. AZITHROMYCIN [Concomitant]
     Active Substance: AZITHROMYCIN
     Indication: Product used for unknown indication
     Route: 065
     Dates: start: 2023
  48. AZITHROMYCIN [Concomitant]
     Active Substance: AZITHROMYCIN
     Indication: Product used for unknown indication
     Route: 065

REACTIONS (70)
  - Myocardial infarction [Unknown]
  - Bronchiolitis [Not Recovered/Not Resolved]
  - Pyrexia [Not Recovered/Not Resolved]
  - Pneumonia [Recovering/Resolving]
  - Colorectal cancer [Unknown]
  - Abdominal pain [Not Recovered/Not Resolved]
  - Carpal tunnel syndrome [Unknown]
  - Diplegia [Recovered/Resolved]
  - Colitis microscopic [Not Recovered/Not Resolved]
  - Rheumatoid arthritis [Recovering/Resolving]
  - Diabetes mellitus inadequate control [Recovered/Resolved]
  - Psoriatic arthropathy [Not Recovered/Not Resolved]
  - Spinal operation [Unknown]
  - Spondylitis [Not Recovered/Not Resolved]
  - Frequent bowel movements [Recovering/Resolving]
  - Diarrhoea [Not Recovered/Not Resolved]
  - Paraesthesia [Recovered/Resolved]
  - Fall [Unknown]
  - Nasal congestion [Recovered/Resolved]
  - Cough [Recovered/Resolved]
  - Arthritis [Not Recovered/Not Resolved]
  - Pain in jaw [Not Recovered/Not Resolved]
  - Infection [Not Recovered/Not Resolved]
  - Osteoarthritis [Unknown]
  - COVID-19 [Recovered/Resolved]
  - Nausea [Unknown]
  - Abdominal pain [Not Recovered/Not Resolved]
  - Defaecation urgency [Not Recovered/Not Resolved]
  - Asthenia [Unknown]
  - Infusion related reaction [Not Recovered/Not Resolved]
  - Hyperhidrosis [Unknown]
  - Abdominal distension [Not Recovered/Not Resolved]
  - Faeces discoloured [Unknown]
  - Influenza [Unknown]
  - Infected cyst [Recovered/Resolved]
  - Gastrointestinal disorder [Recovered/Resolved]
  - Hypoaesthesia [Unknown]
  - Feeling abnormal [Unknown]
  - Bacterial infection [Unknown]
  - Benign anorectal neoplasm [Not Recovered/Not Resolved]
  - Intervertebral disc protrusion [Not Recovered/Not Resolved]
  - Abdominal mass [Not Recovered/Not Resolved]
  - Dyschezia [Unknown]
  - Myositis [Unknown]
  - Gastrooesophageal reflux disease [Unknown]
  - Hepatomegaly [Unknown]
  - Pallor [Unknown]
  - Gastrointestinal sounds abnormal [Unknown]
  - Incontinence [Unknown]
  - Stress [Not Recovered/Not Resolved]
  - Induration [Unknown]
  - Contusion [Unknown]
  - Lymphadenopathy [Not Recovered/Not Resolved]
  - Arthralgia [Not Recovered/Not Resolved]
  - Trigger finger [Not Recovered/Not Resolved]
  - Drug ineffective [Unknown]
  - Calcinosis [Unknown]
  - Pancreatic cyst [Not Recovered/Not Resolved]
  - Sensory loss [Unknown]
  - Vision blurred [Unknown]
  - Fungal infection [Not Recovered/Not Resolved]
  - Tremor [Recovering/Resolving]
  - Palpitations [Recovering/Resolving]
  - Aphonia [Recovering/Resolving]
  - Contusion [Recovering/Resolving]
  - Somnolence [Unknown]
  - Blood iron decreased [Not Recovered/Not Resolved]
  - Respiratory tract infection [Recovered/Resolved]
  - Insomnia [Not Recovered/Not Resolved]
  - Weight increased [Not Recovered/Not Resolved]

NARRATIVE: CASE EVENT DATE: 20220509
